FAERS Safety Report 6964848-1 (Version None)
Quarter: 2010Q3

REPORT INFORMATION
  Report Type: 
  Country: None (occurrence: None)
  Receive Date: 20100903
  Receipt Date: 20100826
  Transmission Date: 20110219
  Serious: Yes (Other)
  Sender: FDA-Public Use
  Company Number: CA-JNJFOC-20100809070

PATIENT
  Sex: Female
  Weight: 100 kg

DRUGS (2)
  1. REMICADE [Suspect]
     Indication: PSORIASIS
     Route: 042
  2. REMICADE [Suspect]
     Route: 042

REACTIONS (4)
  - ASTHMA [None]
  - GASTROENTERITIS VIRAL [None]
  - LUNG INFECTION [None]
  - TYPE 2 DIABETES MELLITUS [None]
